FAERS Safety Report 8935567 (Version 4)
Quarter: 2013Q1

REPORT INFORMATION
  Report Type: Spontaneous
  Country: BR (occurrence: BR)
  Receive Date: 20121130
  Receipt Date: 20130226
  Transmission Date: 20140127
  Serious: Yes (Other)
  Sender: FDA-Public Use
  Company Number: PHHY2012BR109679

PATIENT
  Sex: Female
  Weight: 73 kg

DRUGS (12)
  1. EXJADE [Suspect]
     Indication: SICKLE CELL ANAEMIA
     Dosage: 3 DF, DAILY
     Route: 048
     Dates: start: 200701
  2. DIPIRON [Concomitant]
     Dosage: 1 DF, DAILY
     Dates: start: 19730423
  3. CINNARIZINE [Concomitant]
     Dosage: 2 DF, DAILY
     Dates: start: 200701
  4. FOLIC ACID [Concomitant]
     Dosage: 1 DF, DAILY
     Route: 048
     Dates: start: 200701
  5. RIVOTRIL [Concomitant]
     Dosage: 1 DF, AT MORNIG AND AT NIGHT
     Dates: start: 200701
  6. AMYTRIL [Concomitant]
     Dosage: 2 DF, DAILY
     Route: 048
     Dates: start: 200701
  7. RANITIDINE [Concomitant]
     Dosage: 2 DF, DAILY
     Route: 048
     Dates: start: 200701
  8. OMEPRAZOLE [Concomitant]
     Dosage: 2 DF, DAILY
     Route: 048
     Dates: start: 200701
  9. BROMOPRIDE [Concomitant]
     Dosage: 1 DF, DAILY
     Route: 048
  10. HYDREA [Concomitant]
     Dosage: 3 DF, DAILY
     Route: 048
  11. FLUNARIZINE DIHYDROCHLORIDE [Concomitant]
     Dosage: 3 DF, DAILY
     Route: 048
  12. TRANSFUSIONS [Concomitant]

REACTIONS (12)
  - Ear infection [Unknown]
  - Tympanic membrane perforation [Unknown]
  - Labyrinthitis [Recovered/Resolved]
  - Myocardial infarction [Recovered/Resolved]
  - Joint injury [Recovered/Resolved]
  - Swelling [Not Recovered/Not Resolved]
  - Irritability [Recovered/Resolved]
  - Fall [Recovered/Resolved]
  - Weight increased [Not Recovered/Not Resolved]
  - Abdominal distension [Unknown]
  - Dizziness [Recovered/Resolved]
  - Serum ferritin increased [Recovered/Resolved]
